FAERS Safety Report 7774767-9 (Version None)
Quarter: 2011Q3

REPORT INFORMATION
  Report Type: 
  Country: None (occurrence: None)
  Receive Date: 20110923
  Receipt Date: 20110915
  Transmission Date: 20111222
  Serious: Yes (Other)
  Sender: FDA-Public Use
  Company Number: US-ACTELION-A-US2011-48364

PATIENT

DRUGS (4)
  1. ASPIRIN [Concomitant]
  2. TRACLEER [Suspect]
     Indication: PULMONARY ARTERIAL HYPERTENSION
     Dosage: UNK
     Route: 048
     Dates: start: 20100917
  3. CALCIUM CHANNEL BLOCKERS [Concomitant]
  4. ADCIRCA [Concomitant]

REACTIONS (3)
  - LUNG CARCINOMA CELL TYPE UNSPECIFIED STAGE III [None]
  - CONDITION AGGRAVATED [None]
  - METASTASES TO LYMPH NODES [None]
